FAERS Safety Report 19159927 (Version 3)
Quarter: 2021Q4

REPORT INFORMATION
  Report Type: Spontaneous
  Country: US (occurrence: US)
  Receive Date: 20210420
  Receipt Date: 20211013
  Transmission Date: 20220303
  Serious: Yes (Other)
  Sender: FDA-Public Use
  Company Number: US-GILEAD-2021-0525985

PATIENT
  Age: 47 Year
  Sex: Male

DRUGS (3)
  1. TRUVADA [Suspect]
     Active Substance: EMTRICITABINE\TENOFOVIR DISOPROXIL FUMARATE
     Indication: HIV infection
     Dosage: UNK
     Route: 065
     Dates: start: 20110926, end: 20161024
  2. DESCOVY [Concomitant]
     Active Substance: EMTRICITABINE\TENOFOVIR ALAFENAMIDE FUMARATE
  3. SYMTUZA [Concomitant]
     Active Substance: COBICISTAT\DARUNAVIR\EMTRICITABINE\TENOFOVIR ALAFENAMIDE

REACTIONS (10)
  - Chronic kidney disease [Not Recovered/Not Resolved]
  - Multiple fractures [Unknown]
  - Tooth loss [Unknown]
  - Bone density decreased [Unknown]
  - Emotional distress [Unknown]
  - Tooth development disorder [Not Recovered/Not Resolved]
  - Foot fracture [Not Recovered/Not Resolved]
  - Foot fracture [Not Recovered/Not Resolved]
  - Anxiety [Unknown]
  - Pain [Unknown]

NARRATIVE: CASE EVENT DATE: 20140701
